FAERS Safety Report 7926556 (Version 3)
Quarter: 2013Q2

REPORT INFORMATION
  Report Type: Spontaneous
  Country: US (occurrence: US)
  Receive Date: 20110502
  Receipt Date: 20130424
  Transmission Date: 20140414
  Serious: Yes (Other)
  Sender: FDA-Public Use
  Company Number: US-ASTRAZENECA-2010SE57763

PATIENT
  Age: 80 Year
  Sex: Female

DRUGS (2)
  1. NEXIUM [Suspect]
     Route: 048
  2. OTHER MEDICATION [Concomitant]

REACTIONS (5)
  - Foot fracture [Unknown]
  - Limb injury [Unknown]
  - Fall [Unknown]
  - Influenza [Unknown]
  - Nasopharyngitis [Unknown]
